FAERS Safety Report 10169962 (Version 7)
Quarter: 2014Q2

REPORT INFORMATION
  Report Type: Spontaneous
  Country: US (occurrence: US)
  Receive Date: 20140513
  Receipt Date: 20140616
  Transmission Date: 20141212
  Serious: Yes (Hospitalization, Other)
  Sender: FDA-Public Use
  Company Number: US-JNJFOC-20140503643

PATIENT
  Age: 72 Year
  Sex: Male
  Weight: 65.42 kg

DRUGS (7)
  1. XARELTO [Suspect]
     Indication: CEREBROVASCULAR ACCIDENT PROPHYLAXIS
     Dosage: EVERY NIGHT AT BEDTIME (QHS)
     Route: 048
     Dates: start: 20140115, end: 20140128
  2. XARELTO [Suspect]
     Indication: ATRIAL FIBRILLATION
     Dosage: EVERY NIGHT AT BEDTIME (QHS)
     Route: 048
     Dates: start: 20140115, end: 20140128
  3. XARELTO [Suspect]
     Indication: ANTICOAGULANT THERAPY
     Dosage: EVERY NIGHT AT BEDTIME (QHS)
     Route: 048
     Dates: start: 20140115, end: 20140128
  4. FIGITUMUMAB [Suspect]
     Indication: NON-SMALL CELL LUNG CANCER
     Route: 042
     Dates: start: 20090803
  5. FIGITUMUMAB [Suspect]
     Indication: NON-SMALL CELL LUNG CANCER
     Route: 042
     Dates: start: 20130925, end: 20131125
  6. ASPIRIN [Suspect]
     Indication: CEREBROVASCULAR ACCIDENT PROPHYLAXIS
     Route: 048
     Dates: end: 20140129
  7. ASPIRIN [Suspect]
     Indication: CEREBROVASCULAR ACCIDENT PROPHYLAXIS
     Route: 048
     Dates: start: 20140201

REACTIONS (6)
  - Anaemia [Recovered/Resolved]
  - Hypotension [Recovered/Resolved]
  - Wound haemorrhage [Recovered/Resolved]
  - Epistaxis [Recovered/Resolved]
  - Blood creatinine increased [Recovering/Resolving]
  - Blood potassium abnormal [Recovering/Resolving]
